FAERS Safety Report 6835327-7 (Version None)
Quarter: 2010Q3

REPORT INFORMATION
  Report Type: 
  Country: None (occurrence: None)
  Receive Date: 20100713
  Receipt Date: 20100705
  Transmission Date: 20110219
  Serious: Yes (Other)
  Sender: FDA-Public Use
  Company Number: JP-JNJFOC-20100607220

PATIENT
  Age: 63 Year
  Sex: Male

DRUGS (2)
  1. DUROTEP MT PATCH [Suspect]
     Indication: CANCER PAIN
     Dosage: 100 MCG/HR PLUS 50 MCG/HR
     Route: 062
  2. DUROTEP MT PATCH [Suspect]
     Route: 062

REACTIONS (3)
  - DELIRIUM [None]
  - HALLUCINATION, AUDITORY [None]
  - RESTLESSNESS [None]
